FAERS Safety Report 6945261-X (Version None)
Quarter: 2010Q3

REPORT INFORMATION
  Report Type: 
  Country: None (occurrence: None)
  Receive Date: 20100827
  Receipt Date: 20100714
  Transmission Date: 20110219
  Serious: No
  Sender: FDA-Public Use
  Company Number: US-KINGPHARMUSA00001-K201000884

PATIENT
  Age: 64 Year
  Sex: Male
  Weight: 78.912 kg

DRUGS (2)
  1. FLECTOR [Suspect]
     Indication: ARTHRALGIA
     Dosage: 1 PATCH, ON FOR 12H QD
     Route: 061
     Dates: start: 20100709, end: 20100713
  2. FLECTOR [Suspect]
     Indication: ARTHRITIS

REACTIONS (4)
  - EPISTAXIS [None]
  - HEART RATE INCREASED [None]
  - HYPOAESTHESIA [None]
  - PALPITATIONS [None]
